FAERS Safety Report 25250929 (Version 2)
Quarter: 2025Q2

REPORT INFORMATION
  Report Type: Spontaneous
  Country: US (occurrence: US)
  Receive Date: 20250429
  Receipt Date: 20250509
  Transmission Date: 20250716
  Serious: No
  Sender: VERTEX
  Company Number: US-VERTEX PHARMACEUTICALS-2025-006439

PATIENT
  Age: 29 Year
  Sex: Male

DRUGS (2)
  1. TRIKAFTA [Suspect]
     Active Substance: ELEXACAFTOR\IVACAFTOR\TEZACAFTOR
     Indication: Cystic fibrosis
     Route: 048
  2. URSODIOL [Concomitant]
     Active Substance: URSODIOL

REACTIONS (9)
  - Atypical mycobacterium test positive [Unknown]
  - Medical device site calcification [Unknown]
  - Liver disorder [Not Recovered/Not Resolved]
  - Gallbladder atrophy [Unknown]
  - Cholelithiasis [Unknown]
  - Renal atrophy [Unknown]
  - Portal hypertension [Not Recovered/Not Resolved]
  - Splenomegaly [Not Recovered/Not Resolved]
  - Pancreatic cyst [Not Recovered/Not Resolved]
